FAERS Safety Report 24896870 (Version 1)
Quarter: 2025Q1

REPORT INFORMATION
  Report Type: Report from Study
  Country: CA (occurrence: CA)
  Receive Date: 20250128
  Receipt Date: 20250128
  Transmission Date: 20250409
  Serious: Yes (Other)
  Sender: ABBVIE
  Company Number: CA-JNJFOC-20240744886

PATIENT
  Age: 85 Year
  Sex: Female

DRUGS (3)
  1. IMBRUVICA [Suspect]
     Active Substance: IBRUTINIB
     Indication: Waldenstrom^s macroglobulinaemia refractory
     Route: 048
  2. IMBRUVICA [Suspect]
     Active Substance: IBRUTINIB
     Indication: Waldenstrom^s macroglobulinaemia refractory
     Route: 048
  3. IMBRUVICA [Suspect]
     Active Substance: IBRUTINIB
     Indication: Waldenstrom^s macroglobulinaemia refractory
     Route: 048
     Dates: end: 20250116

REACTIONS (4)
  - Waldenstrom^s macroglobulinaemia [Unknown]
  - Cystitis [Unknown]
  - Anaemia [Unknown]
  - Cardiotoxicity [Unknown]
